FAERS Safety Report 9066859 (Version 1)
Quarter: 2013Q1

REPORT INFORMATION
  Report Type: Report from Study
  Country: US (occurrence: US)
  Receive Date: 20130131
  Receipt Date: 20130131
  Transmission Date: 20140127
  Serious: No
  Sender: FDA-Public Use
  Company Number: US-ABBOTT-12P-163-1007840-00

PATIENT
  Age: 33 Year
  Sex: Male

DRUGS (2)
  1. HUMIRA [Suspect]
     Indication: PSORIASIS
     Route: 058
     Dates: start: 20121102, end: 20121102
  2. HUMIRA [Suspect]
     Dates: start: 20121109

REACTIONS (2)
  - Feeling hot [Recovered/Resolved]
  - Cough [Recovering/Resolving]
